FAERS Safety Report 13113096 (Version 1)
Quarter: 2017Q1

REPORT INFORMATION
  Report Type: Spontaneous
  Country: US (occurrence: US)
  Receive Date: 20170112
  Receipt Date: 20170112
  Transmission Date: 20170428
  Serious: Yes (Disabling)
  Sender: FDA-Public Use
  Company Number: None

PATIENT
  Age: 67 Year
  Sex: Female
  Weight: 70.2 kg

DRUGS (22)
  1. PAXIL [Concomitant]
     Active Substance: PAROXETINE HYDROCHLORIDE
  2. KLONOPIN [Concomitant]
     Active Substance: CLONAZEPAM
  3. LIBRAX [Concomitant]
     Active Substance: CHLORDIAZEPOXIDE HYDROCHLORIDE\CLIDINIUM BROMIDE
  4. LIDOCAINE. [Concomitant]
     Active Substance: LIDOCAINE
  5. ESTER C [Concomitant]
  6. REMERON [Concomitant]
     Active Substance: MIRTAZAPINE
  7. ALPHA LIPOIC ACID [Concomitant]
     Active Substance: .ALPHA.-LIPOIC ACID
  8. NEUPRO [Suspect]
     Active Substance: ROTIGOTINE
     Indication: PARKINSONISM
     Dosage: ?          QUANTITY:30 PATCH(ES);?
     Route: 062
     Dates: start: 20170110, end: 20170111
  9. ELIQUIS [Concomitant]
     Active Substance: APIXABAN
  10. COQ10 [Concomitant]
     Active Substance: UBIDECARENONE
  11. MAXALT [Concomitant]
     Active Substance: RIZATRIPTAN BENZOATE
  12. ZYRTEC [Concomitant]
     Active Substance: CETIRIZINE HYDROCHLORIDE
  13. FISH OIL [Concomitant]
     Active Substance: FISH OIL
  14. LYRICA [Concomitant]
     Active Substance: PREGABALIN
  15. CARBADOPA-LEVODOPA [Concomitant]
  16. FLECTOR [Concomitant]
     Active Substance: DICLOFENAC EPOLAMINE
  17. NUTRITION/GREENS FIRST [Concomitant]
  18. SUPER B-COMPLEX [Concomitant]
  19. OMEGA-3 ACIDS [Concomitant]
     Active Substance: OMEGA-3 FATTY ACIDS
  20. TIZANIDINE. [Concomitant]
     Active Substance: TIZANIDINE
  21. VITAMIN D3 [Concomitant]
     Active Substance: CHOLECALCIFEROL
  22. MATURE MULTI-VITAMIN + MINERAL [Concomitant]

REACTIONS (5)
  - Feeling abnormal [None]
  - Anal incontinence [None]
  - Economic problem [None]
  - Diarrhoea [None]
  - Nausea [None]

NARRATIVE: CASE EVENT DATE: 20170110
